FAERS Safety Report 4926340-5 (Version None)
Quarter: 2006Q1

REPORT INFORMATION
  Report Type: 
  Country: None (occurrence: None)
  Receive Date: 20060228
  Receipt Date: 20051102
  Transmission Date: 20060701
  Serious: No
  Sender: FDA-Public Use
  Company Number: US-GLAXOSMITHKLINE-A0580641A

PATIENT
  Age: 28 Year
  Sex: Male

DRUGS (7)
  1. LAMICTAL [Suspect]
     Indication: BIPOLAR DISORDER
     Dosage: 200MG PER DAY
     Route: 048
     Dates: start: 20050901
  2. NAPROXEN [Suspect]
  3. PREDNISONE [Concomitant]
  4. FLONASE [Concomitant]
  5. ZYRTEC [Concomitant]
  6. ACYCLOVIR SODIUM [Concomitant]
  7. DEPAKOTE [Concomitant]

REACTIONS (3)
  - ANOREXIA [None]
  - FUNGAL INFECTION [None]
  - WEIGHT INCREASED [None]
